FAERS Safety Report 5520431-6 (Version None)
Quarter: 2007Q4

REPORT INFORMATION
  Report Type: 
  Country: None (occurrence: None)
  Receive Date: 20071114
  Receipt Date: 20071107
  Transmission Date: 20080405
  Serious: Yes (Other)
  Sender: FDA-Public Use
  Company Number: SPV1-2007-04856

PATIENT

DRUGS (1)
  1. PENTASA [Suspect]

REACTIONS (1)
  - GUILLAIN-BARRE SYNDROME [None]
